FAERS Safety Report 6156820-9 (Version None)
Quarter: 2009Q2

REPORT INFORMATION
  Report Type: 
  Country: None (occurrence: None)
  Receive Date: 20090416
  Receipt Date: 20090407
  Transmission Date: 20091009
  Serious: Yes (Other)
  Sender: FDA-Public Use
  Company Number: DE-ASTRAZENECA-2009PK01044

PATIENT
  Age: 16 Year
  Sex: Male

DRUGS (2)
  1. PROPOFOL [Suspect]
     Indication: SEDATION
     Dosage: 12.5 ML/H
     Route: 041
  2. AMINO ACID SOLUTION+ LIPIDS [Suspect]
     Indication: PARENTERAL NUTRITION
     Dosage: 60 ML/H
     Route: 041

REACTIONS (2)
  - HYDROTHORAX [None]
  - MEDIASTINAL DISORDER [None]
